FAERS Safety Report 14963735 (Version 1)
Quarter: 2018Q2

REPORT INFORMATION
  Report Type: Spontaneous
  Country: BR (occurrence: BR)
  Receive Date: 20180601
  Receipt Date: 20180601
  Transmission Date: 20180711
  Serious: Yes (Life-Threatening, Hospitalization)
  Sender: FDA-Public Use
  Company Number: BR-GUERBET-BR-20180212

PATIENT
  Age: 61 Year
  Sex: Female
  Weight: 80 kg

DRUGS (2)
  1. FDG ATIVI [Concomitant]
     Indication: POSITRON EMISSION TOMOGRAM
     Route: 042
     Dates: start: 20180510, end: 20180510
  2. OPTIRAY 320 [Suspect]
     Active Substance: IOVERSOL
     Indication: POSITRON EMISSION TOMOGRAM
     Route: 042
     Dates: start: 20180510, end: 20180510

REACTIONS (4)
  - Cardio-respiratory arrest [Recovered/Resolved]
  - Vomiting [Recovered/Resolved]
  - Laryngeal oedema [Recovered/Resolved]
  - Nervousness [Recovered/Resolved]

NARRATIVE: CASE EVENT DATE: 20180510
